FAERS Safety Report 16780344 (Version 2)
Quarter: 2019Q3

REPORT INFORMATION
  Report Type: Report from Study
  Country: US (occurrence: US)
  Receive Date: 20190906
  Receipt Date: 20190919
  Transmission Date: 20191005
  Serious: Yes (Hospitalization, Congenital Anomaly, Other)
  Sender: FDA-Public Use
  Company Number: US-JNJFOC-20190904823

PATIENT
  Sex: Male

DRUGS (2)
  1. IMBRUVICA [Suspect]
     Active Substance: IBRUTINIB
     Route: 048
     Dates: start: 201908, end: 20190808
  2. IMBRUVICA [Suspect]
     Active Substance: IBRUTINIB
     Indication: CHRONIC LYMPHOCYTIC LEUKAEMIA
     Dosage: 420 MG, QD
     Route: 048
     Dates: start: 20190724, end: 20190808

REACTIONS (6)
  - Bradycardia [Unknown]
  - Platelet count decreased [Not Recovered/Not Resolved]
  - Oropharyngeal pain [Unknown]
  - Sleep apnoea syndrome [Unknown]
  - Cardiac disorder [Not Recovered/Not Resolved]
  - Atrial flutter [Unknown]
